FAERS Safety Report 17122668 (Version 1)
Quarter: 2019Q4

REPORT INFORMATION
  Report Type: Spontaneous
  Country: JP (occurrence: JP)
  Receive Date: 20191206
  Receipt Date: 20191206
  Transmission Date: 20200122
  Serious: Yes (Other)
  Sender: FDA-Public Use
  Company Number: JP-PFIZER INC-2019522534

PATIENT
  Age: 88 Year
  Sex: Male
  Weight: 40 kg

DRUGS (3)
  1. ALLOPURINOL. [Concomitant]
     Active Substance: ALLOPURINOL
     Dosage: UNK
  2. VFEND [Suspect]
     Active Substance: VORICONAZOLE
     Dosage: 200 UNK, 2X/DAY
     Route: 048
     Dates: start: 20191122, end: 20191125
  3. VFEND [Suspect]
     Active Substance: VORICONAZOLE
     Dosage: 300 UNK, 2X/DAY
     Route: 042
     Dates: start: 20191119, end: 20191121

REACTIONS (2)
  - Rhabdomyolysis [Unknown]
  - Blood creatine phosphokinase increased [Unknown]

NARRATIVE: CASE EVENT DATE: 2019
